FAERS Safety Report 7636838-7 (Version None)
Quarter: 2011Q3

REPORT INFORMATION
  Report Type: 
  Country: None (occurrence: None)
  Receive Date: 20110726
  Receipt Date: 20110614
  Transmission Date: 20111222
  Serious: No
  Sender: FDA-Public Use
  Company Number: US-BAYER-2011-051685

PATIENT
  Age: 67 Year
  Sex: Male
  Weight: 93 kg

DRUGS (3)
  1. METFORMIN HCL [Concomitant]
  2. ALEVE (CAPLET) [Suspect]
     Indication: ARTHRITIS
     Dosage: 440 MG, QD
     Route: 048
     Dates: start: 20110531
  3. SIMVASTATIN [Concomitant]

REACTIONS (2)
  - ARTHRALGIA [None]
  - MUSCULOSKELETAL PAIN [None]
